FAERS Safety Report 13466837 (Version 1)
Quarter: 2017Q2

REPORT INFORMATION
  Report Type: Spontaneous
  Country: US (occurrence: US)
  Receive Date: 20170421
  Receipt Date: 20170421
  Transmission Date: 20170830
  Serious: No
  Sender: FDA-Public Use
  Company Number: US-GLAXOSMITHKLINE-US2017GSK057580

PATIENT
  Sex: Female

DRUGS (3)
  1. BREO ELLIPTA [Suspect]
     Active Substance: FLUTICASONE FUROATE\VILANTEROL TRIFENATATE
  2. LAMICTAL [Suspect]
     Active Substance: LAMOTRIGINE
  3. WELLBUTRIN [Suspect]
     Active Substance: BUPROPION HYDROCHLORIDE

REACTIONS (4)
  - Aphthous ulcer [Unknown]
  - Tachycardia [Unknown]
  - Drug hypersensitivity [Unknown]
  - Swollen tongue [Unknown]
